FAERS Safety Report 8007741-8 (Version None)
Quarter: 2011Q4

REPORT INFORMATION
  Report Type: 
  Country: None (occurrence: None)
  Receive Date: 20111227
  Receipt Date: 20110321
  Transmission Date: 20120403
  Serious: No
  Sender: FDA-Public Use
  Company Number: US-ABBOTT-11P-163-0713149-00

PATIENT
  Sex: Male
  Weight: 51.302 kg

DRUGS (2)
  1. EPIPEN [Concomitant]
     Indication: HYPERSENSITIVITY
  2. LUPRON DEPOT [Suspect]
     Indication: BLOOD GROWTH HORMONE ABNORMAL
     Dates: start: 20090101

REACTIONS (4)
  - HYPERTENSION [None]
  - HEADACHE [None]
  - INJECTION SITE REACTION [None]
  - HOT FLUSH [None]
